FAERS Safety Report 8790072 (Version 2)
Quarter: 2012Q4

REPORT INFORMATION
  Report Type: 
  Country: US (occurrence: US)
  Receive Date: 20120917
  Receipt Date: 20121018
  Transmission Date: 20130627
  Serious: Yes (Disabling, Other)
  Sender: FDA-Public Use
  Company Number: US-PFIZER INC-2012228492

PATIENT
  Age: 57 Year
  Sex: Female
  Weight: 90.7 kg

DRUGS (15)
  1. GABAPENTIN [Suspect]
     Dosage: 600 mg (two capsules of 300mg), 3x/day
     Route: 048
  2. GABAPENTIN [Suspect]
     Dosage: UNK
     Route: 048
  3. SERTRALINE HCL [Suspect]
     Indication: DEPRESSION
     Dosage: 100 mg, 1x/day
     Route: 048
     Dates: start: 1993
  4. SERTRALINE HCL [Suspect]
     Dosage: UNK
     Route: 048
  5. DIFLUCAN [Suspect]
     Indication: FUNGAL INFECTION
     Dosage: 150 mg, as needed
     Route: 048
  6. DIFLUCAN [Suspect]
     Dosage: UNK
     Route: 048
  7. APIDRA [Concomitant]
     Dosage: 40 units, 3x/day
  8. LEVEMIR [Concomitant]
     Dosage: 60 units, 2x/day
  9. NORTRIPTYLINE [Concomitant]
     Dosage: 25 mg, 2x/day
  10. CRESTOR [Concomitant]
     Dosage: 10 mg, 1x/day
  11. TRAMADOL [Concomitant]
     Indication: PAIN
     Dosage: 50 mg, as needed
  12. DILTIAZEM [Concomitant]
     Dosage: 60 mg, 2x/day
  13. ASPIRIN [Concomitant]
     Dosage: 81 mg, 1x/day
  14. ALPHA LIPOIC ACID [Concomitant]
     Dosage: 600 mg, 2x/day
  15. EVENING PRIMROSE OIL [Concomitant]
     Dosage: 2600 mg, 2x/day

REACTIONS (6)
  - Cardiac disorder [Not Recovered/Not Resolved]
  - Atrioventricular block [Not Recovered/Not Resolved]
  - Diabetes mellitus [Not Recovered/Not Resolved]
  - Neuropathy peripheral [Not Recovered/Not Resolved]
  - Depression [Not Recovered/Not Resolved]
  - Post-traumatic stress disorder [Not Recovered/Not Resolved]
